FAERS Safety Report 15946308 (Version 3)
Quarter: 2024Q2

REPORT INFORMATION
  Report Type: Spontaneous
  Country: DE (occurrence: DE)
  Receive Date: 20190211
  Receipt Date: 20240401
  Transmission Date: 20240716
  Serious: Yes (Hospitalization, Congenital Anomaly, Other)
  Sender: FDA-Public Use
  Company Number: DE-AUROBINDO-AUR-APL-2019-006808

PATIENT
  Sex: Female
  Weight: 2.55 kg

DRUGS (3)
  1. LAMOTRIGINE [Suspect]
     Active Substance: LAMOTRIGINE
     Indication: Epilepsy
     Dosage: 100 MILLIGRAM, TWO TIMES A DAY
     Route: 064
  2. VALPROIC ACID [Suspect]
     Active Substance: VALPROIC ACID
     Indication: Epilepsy
     Dosage: 1000 MILLIGRAM, 1/2-0-1
     Route: 064
  3. VALPROIC ACID [Suspect]
     Active Substance: VALPROIC ACID
     Dosage: 1500 MILLIGRAM, DAILY (1/2-0-1 PER DAY)
     Route: 064

REACTIONS (13)
  - Foetal anticonvulsant syndrome [Recovering/Resolving]
  - Foetal exposure during pregnancy [Recovering/Resolving]
  - Microcephaly [Unknown]
  - Spina bifida [Unknown]
  - Talipes [Unknown]
  - Arnold-Chiari malformation [Unknown]
  - Low set ears [Unknown]
  - Ill-defined disorder [Unknown]
  - Congenital oral malformation [Unknown]
  - Dysmorphism [Unknown]
  - Lip disorder [Unknown]
  - Meningomyelocele [Unknown]
  - Paralysis [Unknown]
